FAERS Safety Report 6497807-6 (Version None)
Quarter: 2009Q4

REPORT INFORMATION
  Report Type: 
  Country: None (occurrence: None)
  Receive Date: 20091215
  Receipt Date: 20091124
  Transmission Date: 20100525
  Serious: No
  Sender: FDA-Public Use
  Company Number: US-B.I. PHARMACEUTICALS,INC./RIDGEFIELD-2009-BP-14342BP

PATIENT
  Age: 43 Year
  Sex: Female

DRUGS (1)
  1. METACAM ORAL SUSPENSION [Suspect]
     Indication: ACCIDENTAL EXPOSURE
     Route: 061
     Dates: start: 20091118

REACTIONS (2)
  - ACCIDENTAL EXPOSURE [None]
  - RASH [None]
